FAERS Safety Report 9320578 (Version 1)
Quarter: 2013Q2

REPORT INFORMATION
  Report Type: Spontaneous
  Country: US (occurrence: US)
  Receive Date: 20130531
  Receipt Date: 20130531
  Transmission Date: 20140414
  Serious: Yes (Hospitalization)
  Sender: FDA-Public Use
  Company Number: US-AMGEN-USASP2013038136

PATIENT
  Age: 60 Year
  Sex: Female

DRUGS (2)
  1. ENBREL [Suspect]
     Indication: RHEUMATOID ARTHRITIS
     Dosage: 50 MG, QWK
     Route: 065
  2. HUMIRA [Suspect]
     Dosage: UNK

REACTIONS (8)
  - Tendon injury [Recovered/Resolved]
  - Pain in extremity [Recovered/Resolved]
  - Local swelling [Not Recovered/Not Resolved]
  - Muscular weakness [Recovered/Resolved]
  - Finger deformity [Recovered/Resolved]
  - Hand deformity [Not Recovered/Not Resolved]
  - Joint swelling [Not Recovered/Not Resolved]
  - Device leakage [Recovered/Resolved]
